FAERS Safety Report 4343204-9 (Version None)
Quarter: 2004Q1

REPORT INFORMATION
  Report Type: 
  Country: None (occurrence: None)
  Receive Date: 20040325
  Receipt Date: 20040116
  Transmission Date: 20041129
  Serious: No
  Sender: FDA-Public Use
  Company Number: USA040156894

PATIENT
  Age: 72 Year
  Sex: Female

DRUGS (11)
  1. FORTEO [Suspect]
     Indication: OSTEOPOROSIS
     Dates: start: 20030101
  2. LIPITOR [Concomitant]
  3. CALCIUM WITH VITAMIN D [Concomitant]
  4. SYNTHROID [Concomitant]
  5. MULTI-VITAMIN [Concomitant]
  6. VITAMIN C [Concomitant]
  7. FISH OIL [Concomitant]
  8. VITAMIN E [Concomitant]
  9. ALEVE [Concomitant]
  10. ZANTAC [Concomitant]
  11. FLUOXETINE HCL [Concomitant]

REACTIONS (3)
  - BONE PAIN [None]
  - MYALGIA [None]
  - PAIN IN EXTREMITY [None]
